FAERS Safety Report 7702201-3 (Version None)
Quarter: 2011Q3

REPORT INFORMATION
  Report Type: 
  Country: None (occurrence: None)
  Receive Date: 20110822
  Receipt Date: 20110809
  Transmission Date: 20111222
  Serious: Yes (Hospitalization, Other)
  Sender: FDA-Public Use
  Company Number: US-CELGENEUS-163-21880-08091180

PATIENT
  Age: 50 Year
  Sex: Male
  Weight: 123.3 kg

DRUGS (2)
  1. REVLIMID [Suspect]
     Dosage: 25 MILLIGRAM
     Route: 048
     Dates: start: 20080904, end: 20080915
  2. TEMSIROLIMUS [Suspect]
     Dosage: 20 MILLIGRAM
     Route: 041
     Dates: start: 20080904, end: 20080909

REACTIONS (4)
  - HYPOXIA [None]
  - HYPOKALAEMIA [None]
  - PNEUMONIA [None]
  - HYPOPHOSPHATAEMIA [None]
